FAERS Safety Report 6750311-X (Version None)
Quarter: 2010Q2

REPORT INFORMATION
  Report Type: 
  Country: None (occurrence: None)
  Receive Date: 20100601
  Receipt Date: 20100118
  Transmission Date: 20101027
  Serious: No
  Sender: FDA-Public Use
  Company Number: US-TYCO HEALTHCARE/MALLINCKRODT-T201000332

PATIENT
  Age: 26 Year
  Sex: Male

DRUGS (5)
  1. TECHNESCAN PYP KIT [Suspect]
     Dosage: UNK
     Dates: start: 20100118, end: 20100118
  2. ULTRA-TECHNEKOW [Concomitant]
     Dosage: 25 MCI, SINGLE
     Dates: start: 20100118, end: 20100118
  3. ADRIAMYCIN PFS [Concomitant]
     Indication: HODGKIN'S DISEASE
     Dosage: UNK
     Dates: start: 20100115
  4. BLEOMYCIN [Concomitant]
     Indication: HODGKIN'S DISEASE
     Dosage: UNK
     Dates: start: 20100115
  5. VINBLASTINE SULFATE [Concomitant]
     Indication: HODGKIN'S DISEASE
     Dosage: UNK
     Dates: start: 20100115

REACTIONS (1)
  - DRUG INEFFECTIVE [None]
